FAERS Safety Report 23606020 (Version 2)
Quarter: 2024Q1

REPORT INFORMATION
  Report Type: Spontaneous
  Country: IT (occurrence: IT)
  Receive Date: 20240307
  Receipt Date: 20240315
  Transmission Date: 20240410
  Serious: Yes (Other)
  Sender: FDA-Public Use
  Company Number: None

PATIENT
  Age: 47 Year
  Sex: Male

DRUGS (1)
  1. YESCARTA [Suspect]
     Active Substance: AXICABTAGENE CILOLEUCEL
     Indication: Diffuse large B-cell lymphoma
     Dosage: 0.4 ? 2 X 108 CELLS DISPERSION FOR INFUSION
     Route: 042
     Dates: start: 20230406

REACTIONS (1)
  - Large granular lymphocytosis [Not Recovered/Not Resolved]

NARRATIVE: CASE EVENT DATE: 20240207
